FAERS Safety Report 8438433-9 (Version None)
Quarter: 2012Q2

REPORT INFORMATION
  Report Type: 
  Country: None (occurrence: None)
  Receive Date: 20120614
  Receipt Date: 20120607
  Transmission Date: 20120825
  Serious: Yes (Other)
  Sender: FDA-Public Use
  Company Number: KR-UCBSA-059275

PATIENT
  Age: 72 Year
  Sex: Male

DRUGS (2)
  1. ROTIGOTINE [Suspect]
     Indication: PARKINSON'S DISEASE
     Route: 062
     Dates: start: 20120401, end: 20120501
  2. ROTIGOTINE [Suspect]
     Route: 062
     Dates: start: 20120501, end: 20120501

REACTIONS (2)
  - DIPLEGIA [None]
  - PAIN IN EXTREMITY [None]
